FAERS Safety Report 9694442 (Version 1)
Quarter: 2013Q4

REPORT INFORMATION
  Report Type: Spontaneous
  Country: US (occurrence: US)
  Receive Date: 20131118
  Receipt Date: 20131118
  Transmission Date: 20140711
  Serious: Yes (Other)
  Sender: FDA-Public Use
  Company Number: US-BAXTER-2013BAX044673

PATIENT
  Age: 8 Month
  Sex: Female

DRUGS (12)
  1. GAMMAGARD LIQUID [Suspect]
     Indication: OPSOCLONUS MYOCLONUS
     Route: 042
  2. GAMMAGARD LIQUID [Suspect]
     Indication: OFF LABEL USE
  3. CYCLOPHOSPHAMIDE FOR INJECTION, USP [Suspect]
     Indication: OPSOCLONUS MYOCLONUS
     Dosage: PER DOSE
     Route: 042
  4. CYCLOPHOSPHAMIDE FOR INJECTION, USP [Suspect]
     Indication: OFF LABEL USE
  5. PREDNISOLONE [Suspect]
     Indication: OPSOCLONUS MYOCLONUS
     Route: 065
  6. DEXAMETHASONE [Suspect]
     Indication: OPSOCLONUS MYOCLONUS
     Route: 065
  7. CYCLOSPORINE [Suspect]
     Indication: OPSOCLONUS MYOCLONUS
     Route: 065
  8. RITUXIMAB [Suspect]
     Indication: OPSOCLONUS MYOCLONUS
     Route: 065
  9. RITUXIMAB [Suspect]
  10. OFATUMUMAB [Suspect]
     Indication: OPSOCLONUS MYOCLONUS
     Dosage: INITIAL DOSE
     Route: 065
  11. OFATUMUMAB [Suspect]
     Route: 065
  12. METHOTREXATE [Suspect]
     Indication: OPSOCLONUS MYOCLONUS

REACTIONS (4)
  - Drug ineffective [Not Recovered/Not Resolved]
  - Drug ineffective [Not Recovered/Not Resolved]
  - Bone marrow toxicity [Unknown]
  - Infection [Unknown]
